FAERS Safety Report 9124534 (Version 1)
Quarter: 2013Q1

REPORT INFORMATION
  Report Type: Report from Study
  Country: AU (occurrence: AU)
  Receive Date: 20130227
  Receipt Date: 20130227
  Transmission Date: 20140127
  Serious: Yes (Other)
  Sender: FDA-Public Use
  Company Number: AU-JNJFOC-20130211336

PATIENT
  Age: 48 Year
  Sex: Female

DRUGS (2)
  1. REMICADE [Suspect]
     Indication: PSORIASIS
     Dosage: 4TH INFUSION, INFUSION GIVEN OVER 1 HOUR
     Route: 042
     Dates: start: 20130215
  2. REMICADE [Suspect]
     Indication: PSORIASIS
     Dosage: 3 INFUSIONS ON UNSPECIFIED DATES
     Route: 042

REACTIONS (3)
  - Medication error [Unknown]
  - Migraine [Recovered/Resolved]
  - Gingival bleeding [Recovered/Resolved]
